FAERS Safety Report 17834872 (Version 2)
Quarter: 2020Q2

REPORT INFORMATION
  Report Type: Spontaneous
  Country: US (occurrence: US)
  Receive Date: 20200528
  Receipt Date: 20200616
  Transmission Date: 20200714
  Serious: Yes (Other)
  Sender: FDA-Public Use
  Company Number: US-ASTRAZENECA-2020SE62722

PATIENT
  Age: 23336 Day
  Sex: Female

DRUGS (2)
  1. FASENRA [Suspect]
     Active Substance: BENRALIZUMAB
     Indication: ASTHMA
     Dosage: 30.0MG UNKNOWN
     Route: 058
     Dates: start: 20190524, end: 20190925
  2. FASENRA [Suspect]
     Active Substance: BENRALIZUMAB
     Indication: BRONCHIECTASIS
     Dosage: 30.0MG UNKNOWN
     Route: 058
     Dates: start: 20190524, end: 20190925

REACTIONS (9)
  - Eye pain [Recovered/Resolved]
  - Arthralgia [Recovered/Resolved]
  - Myalgia [Recovered/Resolved]
  - Paraesthesia [Recovered/Resolved]
  - Hypoaesthesia [Recovered/Resolved]
  - Sinus congestion [Recovered/Resolved]
  - Oedema peripheral [Recovered/Resolved]
  - Alopecia [Recovered/Resolved]
  - Anosmia [Recovered/Resolved]

NARRATIVE: CASE EVENT DATE: 20190615
